FAERS Safety Report 6138829-4 (Version None)
Quarter: 2009Q1

REPORT INFORMATION
  Report Type: 
  Country: None (occurrence: None)
  Receive Date: 20090327
  Receipt Date: 20090317
  Transmission Date: 20090719
  Serious: Yes (Life-Threatening, Other)
  Sender: FDA-Public Use
  Company Number: 2009AL001576

PATIENT
  Age: 43 Year
  Sex: Female

DRUGS (1)
  1. CITALOPRAM HYDROBROMIDE [Suspect]
     Indication: ANXIETY
     Dosage: 10 MG; PO
     Route: 048
     Dates: start: 20090207, end: 20090215

REACTIONS (2)
  - INTENTIONAL OVERDOSE [None]
  - PANIC ATTACK [None]
